FAERS Safety Report 11319833 (Version 1)
Quarter: 2015Q3

REPORT INFORMATION
  Report Type: Spontaneous
  Country: US (occurrence: None)
  Receive Date: 20150728
  Receipt Date: 20150728
  Transmission Date: 20151125
  Serious: Yes (Other)
  Sender: FDA-Public Use
  Company Number: None

PATIENT
  Age: 44 Year
  Sex: Female
  Weight: 76.2 kg

DRUGS (4)
  1. LIDOCAINE. [Suspect]
     Active Substance: LIDOCAINE
     Indication: NERVE INJURY
     Dosage: APPLY ONE PATCH  ONCE DAILY  APPLIED TO A SURFACE, USUALLY THE SKIN?3 YRS OFF AND ON
  2. TENS UNIT [Concomitant]
  3. XANAX [Concomitant]
     Active Substance: ALPRAZOLAM
  4. NORCO [Concomitant]
     Active Substance: ACETAMINOPHEN\HYDROCODONE BITARTRATE

REACTIONS (3)
  - Rash [None]
  - Vision blurred [None]
  - Impaired driving ability [None]

NARRATIVE: CASE EVENT DATE: 20150727
